FAERS Safety Report 11129459 (Version 1)
Quarter: 2015Q2

REPORT INFORMATION
  Report Type: Report from Study
  Country: US (occurrence: US)
  Receive Date: 20150521
  Receipt Date: 20150521
  Transmission Date: 20150821
  Serious: Yes (Hospitalization, Other)
  Sender: FDA-Public Use
  Company Number: US-BAYER-2014-130017

PATIENT
  Age: 59 Year
  Sex: Female

DRUGS (7)
  1. INSULIN [Concomitant]
     Active Substance: INSULIN NOS
  2. OXYCODONE [Concomitant]
     Active Substance: OXYCODONE
  3. HYDROCHLOROTHIAZIDE. [Concomitant]
     Active Substance: HYDROCHLOROTHIAZIDE
  4. CARVEDILOL. [Concomitant]
     Active Substance: CARVEDILOL
  5. BETASERON [Suspect]
     Active Substance: INTERFERON BETA-1B
     Indication: MULTIPLE SCLEROSIS
     Dosage: UNK
     Dates: start: 20131030, end: 20140110
  6. BETASERON [Suspect]
     Active Substance: INTERFERON BETA-1B
     Indication: MULTIPLE SCLEROSIS
     Dosage: 8 MIU, QOD
     Route: 058
     Dates: start: 20140420
  7. LISINOPRIL. [Concomitant]
     Active Substance: LISINOPRIL

REACTIONS (10)
  - Blood pressure increased [Recovered/Resolved]
  - Hepatitis C [Not Recovered/Not Resolved]
  - Intervertebral disc protrusion [Recovered/Resolved]
  - Confusional state [Recovered/Resolved]
  - Intervertebral disc protrusion [Not Recovered/Not Resolved]
  - Back pain [Recovered/Resolved]
  - Mental impairment [Recovered/Resolved]
  - Multiple sclerosis relapse [Recovered/Resolved]
  - Blood glucose increased [Recovered/Resolved]
  - Fall [None]

NARRATIVE: CASE EVENT DATE: 201407
